FAERS Safety Report 5525889-4 (Version None)
Quarter: 2007Q4

REPORT INFORMATION
  Report Type: 
  Country: None (occurrence: None)
  Receive Date: 20071126
  Receipt Date: 20071114
  Transmission Date: 20080405
  Serious: Yes (Hospitalization, Other)
  Sender: FDA-Public Use
  Company Number: JP-PFIZER INC-2007090154

PATIENT
  Sex: Male
  Weight: 51.3 kg

DRUGS (1)
  1. SULFASALAZINE [Suspect]
     Indication: COLITIS ULCERATIVE
     Route: 048
     Dates: start: 20050803, end: 20050824

REACTIONS (7)
  - DRUG RASH WITH EOSINOPHILIA AND SYSTEMIC SYMPTOMS [None]
  - HEPATIC FUNCTION ABNORMAL [None]
  - HUMAN HERPES VIRUS 6 SEROLOGY [None]
  - LYMPH NODE PALPABLE [None]
  - LYMPHOCYTE MORPHOLOGY ABNORMAL [None]
  - ORAL CANDIDIASIS [None]
  - PLATELET COUNT DECREASED [None]
